FAERS Safety Report 5786856-9 (Version None)
Quarter: 2008Q2

REPORT INFORMATION
  Report Type: 
  Country: None (occurrence: None)
  Receive Date: 20080625
  Receipt Date: 20080617
  Transmission Date: 20081010
  Serious: Yes (Life-Threatening, Hospitalization)
  Sender: FDA-Public Use
  Company Number: RU-BAYER-200820715GPV

PATIENT
  Age: 28 Year
  Sex: Female

DRUGS (1)
  1. MIRENA [Suspect]
     Indication: CONTRACEPTION
     Route: 015

REACTIONS (5)
  - ABDOMINAL PAIN [None]
  - BLOODY DISCHARGE [None]
  - OVARIAN CYST [None]
  - RUPTURED ECTOPIC PREGNANCY [None]
  - SHOCK HAEMORRHAGIC [None]
